FAERS Safety Report 11217808 (Version 1)
Quarter: 2015Q2

REPORT INFORMATION
  Report Type: Report from Study
  Country: US (occurrence: None)
  Receive Date: 20150623
  Receipt Date: 20150623
  Transmission Date: 20150821
  Serious: Yes (Hospitalization)
  Sender: FDA-Public Use
  Company Number: US-002000

PATIENT
  Age: 53 Year
  Sex: Female
  Weight: 124.74 kg

DRUGS (2)
  1. PARATHYROID HORMONE [Suspect]
     Active Substance: PARATHYROID HORMONE
     Indication: HYPOPARATHYROIDISM
     Route: 058
     Dates: start: 20150524
  2. CALCITRIOL. [Concomitant]
     Active Substance: CALCITRIOL

REACTIONS (9)
  - Drug prescribing error [None]
  - Product quality issue [None]
  - Device breakage [None]
  - Pain in extremity [None]
  - Hypoaesthesia [None]
  - Muscle spasms [None]
  - Blood calcium decreased [None]
  - Device failure [None]
  - Drug dose omission [None]

NARRATIVE: CASE EVENT DATE: 201505
